FAERS Safety Report 9324889 (Version 3)
Quarter: 2013Q3

REPORT INFORMATION
  Report Type: Spontaneous
  Country: JP (occurrence: JP)
  Receive Date: 20130603
  Receipt Date: 20130912
  Transmission Date: 20140515
  Serious: Yes (Other)
  Sender: FDA-Public Use
  Company Number: PHHY2013JP054916

PATIENT
  Sex: Female
  Weight: 2 kg

DRUGS (8)
  1. APRESOLIN [Suspect]
     Dosage: MATERNAL DOSE 3.2MG PER HOUR
     Route: 064
  2. APRESOLIN [Suspect]
     Dosage: MATERNAL DOSE 30 MG
     Route: 064
  3. MAGNESOL [Concomitant]
     Dosage: MATERNAL DOSE 1GM.DAY
     Route: 064
  4. MAGNESOL [Concomitant]
     Dosage: MATERNAL DOSE 15ML/HR
     Route: 064
  5. NICARPINE [Concomitant]
     Dosage: UNK UKN, UNK
     Route: 064
  6. ADALAT [Concomitant]
     Dosage: UNK UKN, UNK
     Route: 064
  7. CORTRIL [Concomitant]
     Dosage: UNK UKN, UNK
     Route: 064
  8. UTEMERIN [Concomitant]
     Dosage: UNK UKN, UNK
     Route: 064

REACTIONS (4)
  - Foetal growth restriction [Unknown]
  - Low birth weight baby [Unknown]
  - Premature baby [Unknown]
  - Foetal exposure during pregnancy [Unknown]
